FAERS Safety Report 9017028 (Version 2)
Quarter: 2013Q2

REPORT INFORMATION
  Report Type: Report from Study
  Country: AU (occurrence: AU)
  Receive Date: 20130117
  Receipt Date: 20130628
  Transmission Date: 20140414
  Serious: Yes (Death, Other)
  Sender: FDA-Public Use
  Company Number: PHHY2013AU003606

PATIENT
  Age: 33 Year
  Sex: Male

DRUGS (5)
  1. CLOZARIL [Suspect]
     Dosage: 350 MG
     Dates: start: 20111107, end: 20130110
  2. TESTOSTERONE UNDECANOATE [Concomitant]
     Indication: NEOPLASM MALIGNANT
     Dosage: 100 MG (3 WEEKLY)
     Route: 030
  3. FGF [Concomitant]
     Indication: IRON DEFICIENCY
     Dosage: 1 DF, QD
     Route: 048
  4. ATORVASTATIN [Concomitant]
     Indication: BLOOD CHOLESTEROL DECREASED
     Dosage: 40 MG
     Route: 048
  5. OMEPRAZOLE [Concomitant]
     Indication: REFLUX GASTRITIS
     Dosage: 20 MG
     Route: 048

REACTIONS (9)
  - Road traffic accident [Fatal]
  - Injury [Fatal]
  - Blood glucose increased [Recovered/Resolved]
  - Blood osmolarity increased [Not Recovered/Not Resolved]
  - Blood creatine increased [Not Recovered/Not Resolved]
  - Protein total decreased [Not Recovered/Not Resolved]
  - Platelet count decreased [Not Recovered/Not Resolved]
  - White blood cell count increased [Recovered/Resolved]
  - Neutrophil count increased [Recovered/Resolved]
